FAERS Safety Report 10398887 (Version 1)
Quarter: 2014Q3

REPORT INFORMATION
  Report Type: Spontaneous
  Country: US (occurrence: None)
  Receive Date: 20140818
  Receipt Date: 20140818
  Transmission Date: 20150326
  Serious: Yes (Disabling)
  Sender: FDA-Public Use
  Company Number: None

PATIENT
  Age: 41 Year
  Sex: Female
  Weight: 97.07 kg

DRUGS (1)
  1. CEVIMELINE [Suspect]
     Active Substance: CEVIMELINE
     Indication: DRY MOUTH
     Route: 048

REACTIONS (3)
  - Migraine [None]
  - No therapeutic response [None]
  - Insomnia [None]

NARRATIVE: CASE EVENT DATE: 20140815
